FAERS Safety Report 26150319 (Version 1)
Quarter: 2025Q4

REPORT INFORMATION
  Report Type: Spontaneous
  Country: US (occurrence: US)
  Receive Date: 20251212
  Receipt Date: 20251212
  Transmission Date: 20260118
  Serious: Yes (Hospitalization, Other)
  Sender: ALEMBIC
  Company Number: US-ALEMBIC PHARMACUETICALS LIMITED-2025SCAL001707

PATIENT

DRUGS (1)
  1. NITROFURANTOIN [Suspect]
     Active Substance: NITROFURANTOIN
     Indication: Urinary tract infection
     Dosage: 3 DOSES
     Route: 065

REACTIONS (10)
  - Thrombotic microangiopathy [Recovered/Resolved]
  - Microangiopathic haemolytic anaemia [Recovered/Resolved]
  - Rectal haemorrhage [Recovered/Resolved]
  - Anaemia [Recovered/Resolved]
  - Thrombocytopenia [Recovered/Resolved]
  - Blood creatinine increased [Recovered/Resolved]
  - Blood bilirubin increased [Recovered/Resolved]
  - Blood bilirubin unconjugated increased [Recovered/Resolved]
  - Blood lactate dehydrogenase increased [Recovered/Resolved]
  - Haptoglobin decreased [Recovered/Resolved]
